FAERS Safety Report 19230641 (Version 1)
Quarter: 2021Q2

REPORT INFORMATION
  Report Type: Spontaneous
  Country: US (occurrence: US)
  Receive Date: 20210506
  Receipt Date: 20210506
  Transmission Date: 20210717
  Serious: Yes (Hospitalization)
  Sender: FDA-Public Use
  Company Number: None

PATIENT
  Age: 46 Year
  Sex: Female
  Weight: 59.4 kg

DRUGS (5)
  1. CARBAMAZEPINE XR 200 MG TABLET [Suspect]
     Active Substance: CARBAMAZEPINE
     Indication: EPILEPSY
     Dosage: ?          QUANTITY:270 TABLET(S);?
     Route: 048
     Dates: start: 20210505, end: 20210505
  2. VITAMIN D [Concomitant]
     Active Substance: VITAMIN D NOS
  3. BIOTIN [Concomitant]
     Active Substance: BIOTIN
  4. VITAMIN C [Concomitant]
     Active Substance: ASCORBIC ACID
  5. AIRBORNE GUMMY^S [Concomitant]

REACTIONS (6)
  - Product substitution issue [None]
  - Muscle tightness [None]
  - Product quality issue [None]
  - Seizure [None]
  - Dizziness [None]
  - Dysarthria [None]

NARRATIVE: CASE EVENT DATE: 20210505
